FAERS Safety Report 4890971-1 (Version None)
Quarter: 2006Q1

REPORT INFORMATION
  Report Type: 
  Country: None (occurrence: None)
  Receive Date: 20060125
  Receipt Date: 20060110
  Transmission Date: 20060701
  Serious: Yes (Other)
  Sender: FDA-Public Use
  Company Number: JP-AVENTIS-200610097JP

PATIENT

DRUGS (3)
  1. CLAFORAN [Suspect]
     Indication: INFECTION
  2. AMARYL [Suspect]
     Route: 048
  3. AMARYL [Suspect]

REACTIONS (1)
  - HYPOGLYCAEMIA [None]
